FAERS Safety Report 6441816-X (Version None)
Quarter: 2009Q4

REPORT INFORMATION
  Report Type: 
  Country: None (occurrence: None)
  Receive Date: 20091113
  Receipt Date: 20091113
  Transmission Date: 20100525
  Serious: Yes (Life-Threatening, Other)
  Sender: FDA-Public Use
  Company Number: None

PATIENT
  Age: 52 Year
  Sex: Female
  Weight: 77.1115 kg

DRUGS (1)
  1. AMBIEN [Suspect]
     Indication: INSOMNIA
     Dosage: ONE AT BEDTIME AT BEDTIME  ONE NIGHT
     Dates: start: 20091109, end: 20091109

REACTIONS (2)
  - ABNORMAL BEHAVIOUR [None]
  - SOMNAMBULISM [None]
